FAERS Safety Report 22675129 (Version 11)
Quarter: 2024Q2

REPORT INFORMATION
  Report Type: Report from Study
  Country: US (occurrence: US)
  Receive Date: 20230706
  Receipt Date: 20240425
  Transmission Date: 20240716
  Serious: Yes (Hospitalization, Other)
  Sender: FDA-Public Use
  Company Number: US-ACADIA PHARMACEUTICALS INC.-ACA-2023-TRF-002170

PATIENT
  Age: 46 Year
  Sex: Female

DRUGS (37)
  1. DAYBUE [Suspect]
     Active Substance: TROFINETIDE
     Indication: Rett syndrome
     Dosage: 40 MILLILITER, BID
     Route: 048
     Dates: start: 20230525
  2. DAYBUE [Suspect]
     Active Substance: TROFINETIDE
     Dosage: 30 MILLILITER, BID
     Route: 048
     Dates: start: 20230601
  3. DAYBUE [Suspect]
     Active Substance: TROFINETIDE
     Dosage: 40 MILLILITER, BID
     Route: 048
  4. DAYBUE [Suspect]
     Active Substance: TROFINETIDE
     Dosage: 35 MILLILITER, BID
     Route: 048
  5. DAYBUE [Suspect]
     Active Substance: TROFINETIDE
     Dosage: 30 MILLILITER, BID
     Route: 048
  6. DAYBUE [Suspect]
     Active Substance: TROFINETIDE
     Dosage: 35ML IN THE MORNING AND 30ML IN THE EVENING
     Route: 048
  7. DAYBUE [Suspect]
     Active Substance: TROFINETIDE
     Dosage: 30 MILLILITER, BID
     Route: 048
  8. DAYBUE [Suspect]
     Active Substance: TROFINETIDE
     Dosage: 35 MILLILITER, BID
     Route: 048
  9. DAYBUE [Suspect]
     Active Substance: TROFINETIDE
     Dosage: 40 MILLILITER, BID
     Route: 048
  10. ACRIVASTINE [Concomitant]
     Active Substance: ACRIVASTINE
  11. CARBAMAZEPINE [Concomitant]
     Active Substance: CARBAMAZEPINE
     Dosage: 15 MILLILITER (5 ML QAM AND 10 ML QPM) [100 MG/5ML]
     Route: 048
  12. ONFI [Concomitant]
     Active Substance: CLOBAZAM
     Dosage: 1 MILLILITER, TID (2.5 MG/ML)
     Route: 048
  13. GABAPENTIN [Concomitant]
     Active Substance: GABAPENTIN
     Dosage: 5 MILLILITER, BID (250 MG/5 ML)
     Route: 048
  14. OMEPRAZOLE [Concomitant]
     Active Substance: OMEPRAZOLE
  15. SINGULAIR [Concomitant]
     Active Substance: MONTELUKAST SODIUM
  16. SCOPOLAMINE [Concomitant]
     Active Substance: SCOPOLAMINE
  17. EVENITY [Concomitant]
     Active Substance: ROMOSOZUMAB-AQQG
     Dosage: 105MG/1.7ML 2 SYRINGE ONCE A MONTH (105MG/1.17 ML SUBCUTANEOUS SYRINGE)
     Route: 058
  18. ACETYLCYSTEINE [Concomitant]
     Active Substance: ACETYLCYSTEINE
     Dosage: 1 DROP, BID (PRN), 200 MG/ML 20 PERCENT
  19. GLYCOPYRROLATE [Concomitant]
     Active Substance: GLYCOPYRROLATE
     Dosage: 1 MILLIGRAM, BID (1 TABLET)
     Route: 048
  20. SCOPOLAMINE [Concomitant]
     Active Substance: SCOPOLAMINE
     Dosage: 1 MG OVER 3 DAYS
     Route: 062
  21. ALENDRONATE [Concomitant]
     Active Substance: ALENDRONATE SODIUM
     Dosage: 10 MILLIGRAM (1 TABLET)
     Route: 048
  22. ESOMEPRAZOLE MAGNESIUM [Concomitant]
     Active Substance: ESOMEPRAZOLE MAGNESIUM
     Dosage: 2.5 MILLIGRAM, QD (1 PACKET)
     Route: 048
  23. CALCIUM [Concomitant]
     Active Substance: CALCIUM
     Dosage: 500 500 MG (1 TABLET)
     Route: 048
  24. PREDNISONE [Concomitant]
     Active Substance: PREDNISONE
     Dosage: 10 MILLIGRAM (1 TABLET)
     Route: 048
  25. BUDESONIDE [Concomitant]
     Active Substance: BUDESONIDE
     Dosage: 1 PUFF (0.25 MG/2 ML SUSPENSION FOR NEBULIZATION)
  26. LEVALBUTEROL [Concomitant]
     Active Substance: LEVALBUTEROL
     Dosage: 1 PUFF, BID (0.63 MG/3 ML)
  27. DULCOLAX (BISACODYL) [Concomitant]
     Active Substance: BISACODYL
     Dosage: 1 TABLET AS DIRECTED
     Route: 048
  28. NEXIUM I.V. [Concomitant]
     Active Substance: ESOMEPRAZOLE SODIUM
     Dosage: 1 PACKET (40 MG), QD
     Route: 048
  29. CHILDRENS ADVIL [Concomitant]
     Active Substance: IBUPROFEN
     Dosage: 1 MILLIGRAM, AS DIRECTED
     Route: 048
  30. TRANSDERM SCOP [Concomitant]
     Active Substance: SCOPOLAMINE
     Dosage: 1.5 MG (1 MG OVER 3 DAYS) AS DIRECTED
     Route: 062
  31. GAS-X [Concomitant]
     Active Substance: DIMETHICONE
     Dosage: 125 MILLIGRAM (1 CAPSULE)
     Route: 048
  32. FOSAMAX [Concomitant]
     Active Substance: ALENDRONATE SODIUM
     Dosage: 70 MILLIGRAM (1 TABLET WEEKLY)
     Route: 048
  33. ACRIVASTINE [Concomitant]
     Active Substance: ACRIVASTINE
     Dosage: 25 MILLIGRAM, QD, NIGHTLY
     Route: 048
  34. MONTELUKAST [Concomitant]
     Active Substance: MONTELUKAST SODIUM
     Dosage: 10 MILLIGRAM, QD, NIGHTLY
     Route: 048
  35. CLONAZEPAM [Concomitant]
     Active Substance: CLONAZEPAM
     Dosage: 0.5 MILLIGRAM (1 TABLET AS DIRECTED, 1/2 TABLET)
     Route: 048
  36. TEGRETOL [Concomitant]
     Active Substance: CARBAMAZEPINE
     Dosage: 200 MILLIGRAM, QD (1 TABLET, NIGHTLY)
     Route: 048
  37. TEGRETOL [Concomitant]
     Active Substance: CARBAMAZEPINE
     Dosage: 1 MILLILITER BY MOUTH AS DIRECTED, IN THE MORNING, 100 MG/5 ML
     Route: 048

REACTIONS (20)
  - Pneumonia viral [Recovered/Resolved]
  - Abdominal distension [Not Recovered/Not Resolved]
  - Abdominal distension [Not Recovered/Not Resolved]
  - Drug ineffective [Unknown]
  - Inappropriate schedule of product administration [Not Recovered/Not Resolved]
  - Drug ineffective [Not Recovered/Not Resolved]
  - Incorrect dose administered [Not Recovered/Not Resolved]
  - Underdose [Not Recovered/Not Resolved]
  - Constipation [Unknown]
  - Flatulence [Unknown]
  - Wheezing [Not Recovered/Not Resolved]
  - Dyspnoea [Not Recovered/Not Resolved]
  - Abdominal distension [Not Recovered/Not Resolved]
  - Hypersomnia [Not Recovered/Not Resolved]
  - Carbon dioxide increased [Not Recovered/Not Resolved]
  - Diarrhoea [Not Recovered/Not Resolved]
  - Diarrhoea [Recovered/Resolved]
  - Diarrhoea [Not Recovered/Not Resolved]
  - Diarrhoea [Not Recovered/Not Resolved]
  - Diarrhoea [Unknown]

NARRATIVE: CASE EVENT DATE: 20230620
